FAERS Safety Report 15189492 (Version 2)
Quarter: 2018Q3

REPORT INFORMATION
  Report Type: Spontaneous
  Country: US (occurrence: US)
  Receive Date: 20180724
  Receipt Date: 20180904
  Transmission Date: 20181010
  Serious: No
  Sender: FDA-Public Use
  Company Number: US-ASTRAZENECA-2018SE38174

PATIENT
  Age: 23406 Day
  Sex: Female
  Weight: 107 kg

DRUGS (1)
  1. BYDUREON BCISE [Suspect]
     Active Substance: EXENATIDE
     Indication: TYPE 2 DIABETES MELLITUS
     Route: 058
     Dates: start: 20180315

REACTIONS (7)
  - Injection site pain [Unknown]
  - Injection site haemorrhage [Unknown]
  - Constipation [Unknown]
  - Circumstance or information capable of leading to medication error [Unknown]
  - Device issue [Unknown]
  - Nervousness [Unknown]
  - Needle issue [Unknown]

NARRATIVE: CASE EVENT DATE: 20180315
